FAERS Safety Report 8238831-2 (Version None)
Quarter: 2012Q1

REPORT INFORMATION
  Report Type: 
  Country: None (occurrence: None)
  Receive Date: 20120327
  Receipt Date: 20120320
  Transmission Date: 20120608
  Serious: Yes (Other)
  Sender: FDA-Public Use
  Company Number: US-PFIZER INC-2012072923

PATIENT
  Sex: Female
  Weight: 103 kg

DRUGS (4)
  1. LANTUS [Concomitant]
     Indication: DIABETES MELLITUS
     Dosage: 20 IU, DAILY
  2. LIPITOR [Suspect]
     Indication: BLOOD CHOLESTEROL ABNORMAL
     Dosage: 40 MG, DAILY
     Route: 048
     Dates: start: 20000101
  3. GLIPIZIDE [Concomitant]
     Indication: DIABETES MELLITUS
     Dosage: 5 MG, 3X/DAY
  4. GLYBURIDE [Concomitant]
     Indication: DIABETES MELLITUS
     Dosage: UNK

REACTIONS (1)
  - CHRONIC OBSTRUCTIVE PULMONARY DISEASE [None]
